FAERS Safety Report 12712690 (Version 2)
Quarter: 2016Q4

REPORT INFORMATION
  Report Type: Report from Study
  Country: US (occurrence: US)
  Receive Date: 20160902
  Receipt Date: 20161027
  Transmission Date: 20170207
  Serious: Yes (Other)
  Sender: FDA-Public Use
  Company Number: US-JNJFOC-20160826616

PATIENT
  Sex: Male

DRUGS (7)
  1. ZOLPIDEM [Concomitant]
     Active Substance: ZOLPIDEM\ZOLPIDEM TARTRATE
  2. CITALOPRAM [Concomitant]
     Active Substance: CITALOPRAM HYDROBROMIDE
  3. IMBRUVICA [Suspect]
     Active Substance: IBRUTINIB
     Indication: NON-HODGKIN^S LYMPHOMA
     Route: 048
     Dates: start: 2016
  4. TRAMADOL. [Concomitant]
     Active Substance: TRAMADOL
  5. IMBRUVICA [Suspect]
     Active Substance: IBRUTINIB
     Indication: NON-HODGKIN^S LYMPHOMA
     Route: 048
     Dates: start: 20160409, end: 2016
  6. THIAMINE. [Concomitant]
     Active Substance: THIAMINE
  7. BUPROPION. [Concomitant]
     Active Substance: BUPROPION

REACTIONS (2)
  - Diabetes mellitus [Unknown]
  - Fatigue [Unknown]
